FAERS Safety Report 16725501 (Version 1)
Quarter: 2019Q3

REPORT INFORMATION
  Report Type: Spontaneous
  Country: MX (occurrence: MX)
  Receive Date: 20190821
  Receipt Date: 20190821
  Transmission Date: 20191005
  Serious: Yes (Other)
  Sender: FDA-Public Use
  Company Number: MX-ROCHE-2379130

PATIENT
  Sex: Female

DRUGS (1)
  1. ROACTEMRA [Suspect]
     Active Substance: TOCILIZUMAB
     Indication: RHEUMATOID ARTHRITIS
     Route: 042
     Dates: start: 2011

REACTIONS (4)
  - Discomfort [Unknown]
  - Joint prosthesis user [Unknown]
  - Amnesia [Unknown]
  - Peripheral swelling [Unknown]
